FAERS Safety Report 8304744-0 (Version None)
Quarter: 2012Q2

REPORT INFORMATION
  Report Type: 
  Country: None (occurrence: None)
  Receive Date: 20120423
  Receipt Date: 20120411
  Transmission Date: 20120825
  Serious: Yes (Hospitalization)
  Sender: FDA-Public Use
  Company Number: IT-CELGENEUS-083-AB007-12041211

PATIENT
  Sex: Male
  Weight: 57 kg

DRUGS (8)
  1. LANSOPRAZOLE [Concomitant]
     Indication: GASTRITIS
     Dosage: 30 MILLIGRAM
     Route: 048
     Dates: start: 20120214, end: 20120402
  2. OXYCONTIN [Concomitant]
     Indication: PAIN
     Route: 048
     Dates: start: 20120217
  3. DEXAMETHASONE [Concomitant]
     Indication: NAUSEA
     Dosage: 4 MILLIGRAM
     Route: 048
     Dates: start: 20120323, end: 20120326
  4. ONDANSETRON [Concomitant]
     Indication: NAUSEA
     Dosage: 8 MILLIGRAM
     Route: 048
     Dates: start: 20120323, end: 20120324
  5. ABRAXANE [Suspect]
     Dosage: 215 MILLIGRAM
     Route: 041
     Dates: start: 20120223
  6. GEMCITABINE [Suspect]
     Route: 041
     Dates: start: 20120223
  7. GEMCITABINE [Suspect]
     Route: 041
     Dates: start: 20120322, end: 20120405
  8. ABRAXANE [Suspect]
     Dosage: 209 MILLIGRAM
     Route: 041
     Dates: start: 20120322, end: 20120405

REACTIONS (3)
  - INTESTINAL OBSTRUCTION [None]
  - ABDOMINAL PAIN [None]
  - DECREASED APPETITE [None]
